FAERS Safety Report 13592540 (Version 5)
Quarter: 2017Q4

REPORT INFORMATION
  Report Type: Spontaneous
  Country: DE (occurrence: DE)
  Receive Date: 20170530
  Receipt Date: 20171025
  Transmission Date: 20180320
  Serious: Yes (Death, Life-Threatening, Hospitalization, Other)
  Sender: FDA-Public Use
  Company Number: DE-BRISTOL-MYERS SQUIBB COMPANY-BMS-2017-036815

PATIENT
  Age: 35 Year
  Sex: Male
  Weight: 89 kg

DRUGS (4)
  1. PANTOPRAZOLE [Concomitant]
     Active Substance: PANTOPRAZOLE
     Indication: PRODUCT USED FOR UNKNOWN INDICATION
     Dosage: 40 MG, UNK
     Route: 065
  2. OPDIVO [Suspect]
     Active Substance: NIVOLUMAB
     Indication: LUNG ADENOCARCINOMA
     Dosage: 3 MG/KG, Q2WK
     Route: 042
     Dates: start: 20170328
  3. ZOLEDRONIC ACID [Concomitant]
     Active Substance: ZOLEDRONIC ACID
     Indication: PRODUCT USED FOR UNKNOWN INDICATION
     Dosage: 4 MG, Q4WK
     Route: 065
  4. CANDESARTAN. [Concomitant]
     Active Substance: CANDESARTAN
     Indication: PRODUCT USED FOR UNKNOWN INDICATION
     Dosage: 32 MG, UNK
     Route: 065

REACTIONS (9)
  - Respiratory failure [Unknown]
  - Encephalitis [Recovering/Resolving]
  - Pneumonia [Fatal]
  - Infective myositis [Fatal]
  - Multiple organ dysfunction syndrome [Fatal]
  - Fasciitis [Fatal]
  - Myelitis [Recovering/Resolving]
  - Streptococcal sepsis [Fatal]
  - Quadriparesis [Recovering/Resolving]

NARRATIVE: CASE EVENT DATE: 20170418
